FAERS Safety Report 6571210-2 (Version None)
Quarter: 2010Q1

REPORT INFORMATION
  Report Type: 
  Country: None (occurrence: None)
  Receive Date: 20100129
  Receipt Date: 20100113
  Transmission Date: 20100710
  Serious: Yes (Death, Hospitalization)
  Sender: FDA-Public Use
  Company Number: 2009AC000286

PATIENT
  Age: 66 Year
  Sex: Male

DRUGS (30)
  1. DIGOXIN [Suspect]
     Dosage: 0.25 MG;QD;PO
     Route: 048
  2. AMIODARONE HCL [Concomitant]
  3. ASPIRIN [Concomitant]
  4. VASOTEC [Concomitant]
  5. LASIX [Concomitant]
  6. ZOCOR [Concomitant]
  7. PREVACID [Concomitant]
  8. PAMELOR [Concomitant]
  9. ALDACTONE [Concomitant]
  10. OXYGEN [Concomitant]
  11. ATROVENT [Concomitant]
  12. XOPENEX [Concomitant]
  13. PACERONE [Concomitant]
  14. LIPITOR [Concomitant]
  15. ULTRAM [Concomitant]
  16. NEXIUM [Concomitant]
  17. VALIUM [Concomitant]
  18. ZESTRIL [Concomitant]
  19. NORTRIPTYLINE HCL [Concomitant]
  20. NAPROXEN [Concomitant]
  21. PROPULSID [Concomitant]
  22. ATIVAN [Concomitant]
  23. HEPARIN [Concomitant]
  24. PLAVIX [Concomitant]
  25. M.V.I. [Concomitant]
  26. LEVAQUIN [Concomitant]
  27. ENALAPRIL MALEATE [Concomitant]
  28. DOCUSATE [Concomitant]
  29. VICODIN [Concomitant]
  30. IBUPROFEN [Concomitant]

REACTIONS (21)
  - ANXIETY [None]
  - AORTIC VALVE INCOMPETENCE [None]
  - ATRIAL FIBRILLATION [None]
  - CARDIAC FAILURE CONGESTIVE [None]
  - CHEST PAIN [None]
  - CHRONIC OBSTRUCTIVE PULMONARY DISEASE [None]
  - CONDITION AGGRAVATED [None]
  - CONFUSIONAL STATE [None]
  - DYSPNOEA [None]
  - ECONOMIC PROBLEM [None]
  - HYPONATRAEMIA [None]
  - HYPOXIA [None]
  - ILEUS PARALYTIC [None]
  - MITRAL VALVE INCOMPETENCE [None]
  - MULTIPLE INJURIES [None]
  - PULMONARY OEDEMA [None]
  - RENAL FAILURE [None]
  - SINUS BRADYCARDIA [None]
  - SURGERY [None]
  - SYNCOPE [None]
  - THERAPEUTIC AGENT TOXICITY [None]
